FAERS Safety Report 7489081-9 (Version None)
Quarter: 2011Q2

REPORT INFORMATION
  Report Type: 
  Country: None (occurrence: None)
  Receive Date: 20110518
  Receipt Date: 20110506
  Transmission Date: 20111010
  Serious: Yes (Hospitalization)
  Sender: FDA-Public Use
  Company Number: US-JNJFOC-20110504271

PATIENT
  Age: 33 Year
  Sex: Male
  Weight: 130 kg

DRUGS (3)
  1. ACETYLCYSTEINE [Suspect]
     Indication: PRODUCT USED FOR UNKNOWN INDICATION
     Dosage: TOOK 60 600MG TABLETS (36G TOTAL; 277MG/KG) OVER 3-4 DAYS
     Route: 048
  2. ACETAMINOPHEN [Suspect]
     Route: 048
  3. ACETAMINOPHEN [Suspect]
     Indication: BACK PAIN
     Route: 048

REACTIONS (3)
  - RENAL IMPAIRMENT [None]
  - ACIDOSIS [None]
  - INTENTIONAL OVERDOSE [None]
